FAERS Safety Report 10014233 (Version 2)
Quarter: 2014Q2

REPORT INFORMATION
  Report Type: Spontaneous
  Country: IT (occurrence: IT)
  Receive Date: 20140317
  Receipt Date: 20140416
  Transmission Date: 20141212
  Serious: Yes (Other)
  Sender: FDA-Public Use
  Company Number: IT-JNJFOC-20140305965

PATIENT
  Age: 25 Year
  Sex: Female

DRUGS (3)
  1. TOPAMAX [Suspect]
     Indication: MENTAL DISORDER
     Dosage: 5 TABLETS
     Route: 048
  2. FLUOXEREN [Concomitant]
     Indication: PRODUCT USED FOR UNKNOWN INDICATION
     Route: 065
  3. EUTIROX [Concomitant]
     Indication: PRODUCT USED FOR UNKNOWN INDICATION
     Route: 065

REACTIONS (1)
  - Self injurious behaviour [Recovering/Resolving]
